FAERS Safety Report 20377481 (Version 1)
Quarter: 2022Q1

REPORT INFORMATION
  Report Type: Spontaneous
  Country: US (occurrence: US)
  Receive Date: 20220126
  Receipt Date: 20220126
  Transmission Date: 20220423
  Serious: Yes (Other)
  Sender: FDA-Public Use
  Company Number: US-CLOVIS ONCOLOGY-CLO-2022-000100

PATIENT
  Sex: Male

DRUGS (1)
  1. RUBRACA [Suspect]
     Active Substance: RUCAPARIB CAMSYLATE
     Indication: Prostate cancer
     Dosage: 450 MILLIGRAM, BID
     Route: 048

REACTIONS (20)
  - Bell^s palsy [Unknown]
  - Erectile dysfunction [Unknown]
  - Arthritis bacterial [Unknown]
  - Glaucoma [Unknown]
  - Embolism venous [Unknown]
  - Metastases to bone [Unknown]
  - Overweight [Unknown]
  - Essential hypertension [Unknown]
  - Migraine with aura [Unknown]
  - Benign prostatic hyperplasia [Unknown]
  - Back pain [Unknown]
  - Sleep apnoea syndrome [Unknown]
  - Musculoskeletal discomfort [Unknown]
  - Gastritis [Unknown]
  - Inguinal hernia [Unknown]
  - Umbilical hernia [Unknown]
  - Osteoarthritis [Unknown]
  - Scapholunate dissociation [Unknown]
  - Sciatica [Unknown]
  - Gastrooesophageal reflux disease [Unknown]
